FAERS Safety Report 5060820-X (Version None)
Quarter: 2006Q3

REPORT INFORMATION
  Report Type: 
  Country: None (occurrence: None)
  Receive Date: 20060720
  Receipt Date: 20060720
  Transmission Date: 20061208
  Serious: Yes (Hospitalization)
  Sender: FDA-Public Use
  Company Number: None

PATIENT
  Age: 61 Year
  Sex: Female
  Weight: 72.5755 kg

DRUGS (1)
  1. KETEK [Suspect]
     Indication: PHARYNGITIS
     Dosage: 2 TABS AFTER DINNER PO
     Route: 048
     Dates: start: 20050622, end: 20050623

REACTIONS (2)
  - ARRHYTHMIA [None]
  - HEART RATE IRREGULAR [None]
